FAERS Safety Report 5218693-8 (Version None)
Quarter: 2007Q1

REPORT INFORMATION
  Report Type: 
  Country: None (occurrence: None)
  Receive Date: 20070122
  Receipt Date: 20070104
  Transmission Date: 20070707
  Serious: Yes (Life-Threatening, Hospitalization)
  Sender: FDA-Public Use
  Company Number: 2007000058

PATIENT
  Age: 93 Year
  Sex: Female
  Weight: 45.3597 kg

DRUGS (10)
  1. MACUGEN [Suspect]
     Indication: MACULAR DEGENERATION
     Dosage: 6 WKS, INTRA-VITREAL
     Route: 050
     Dates: start: 20060823
  2. SYNTHROID [Concomitant]
  3. CALTRATE (CALCIUM CARBONATE) [Concomitant]
  4. MULTIVITAMIN [Concomitant]
  5. VASICARE [Concomitant]
  6. EFFEXOR [Concomitant]
  7. ASPIRIN [Concomitant]
  8. ATENOLOL [Concomitant]
  9. NEBULIZER [Concomitant]
  10. NASAL SPRAY [Concomitant]

REACTIONS (1)
  - MYOCARDIAL INFARCTION [None]
